FAERS Safety Report 25248218 (Version 1)
Quarter: 2025Q2

REPORT INFORMATION
  Report Type: Spontaneous
  Country: CN (occurrence: CN)
  Receive Date: 20250429
  Receipt Date: 20250429
  Transmission Date: 20250716
  Serious: Yes (Other)
  Sender: ROCHE
  Company Number: CN-002147023-NVSC2025CN067182

PATIENT
  Age: 16 Year
  Sex: Female
  Weight: 38 kg

DRUGS (1)
  1. OMALIZUMAB [Suspect]
     Active Substance: OMALIZUMAB
     Indication: Urticaria chronic
     Dosage: 300.000 MG, QD
     Route: 058
     Dates: start: 20250328, end: 20250328

REACTIONS (3)
  - Blood pressure decreased [Recovering/Resolving]
  - Lip discolouration [Recovering/Resolving]
  - Hyperhidrosis [Recovering/Resolving]

NARRATIVE: CASE EVENT DATE: 20250328
